FAERS Safety Report 9156309 (Version 2)
Quarter: 2013Q2

REPORT INFORMATION
  Report Type: Spontaneous
  Country: US (occurrence: US)
  Receive Date: 20130312
  Receipt Date: 20130517
  Transmission Date: 20140414
  Serious: Yes (Other)
  Sender: FDA-Public Use
  Company Number: US-PAR PHARMACEUTICAL, INC-2013SCPR005804

PATIENT
  Sex: 0

DRUGS (1)
  1. BUPROPION HCL XL TABLETS [Suspect]
     Indication: DEPRESSION
     Dosage: 1 DF, ONCE DAILY
     Route: 048
     Dates: start: 20130120, end: 20130223

REACTIONS (8)
  - Adverse drug reaction [Recovered/Resolved]
  - Activities of daily living impaired [Recovered/Resolved]
  - Palpitations [Recovered/Resolved]
  - Sluggishness [Recovered/Resolved]
  - Malaise [Recovered/Resolved]
  - Decreased appetite [Recovered/Resolved]
  - Insomnia [Recovered/Resolved]
  - Influenza like illness [Recovered/Resolved]
